FAERS Safety Report 9106926 (Version 1)
Quarter: 2013Q1

REPORT INFORMATION
  Report Type: Spontaneous
  Country: US (occurrence: US)
  Receive Date: 20130221
  Receipt Date: 20130221
  Transmission Date: 20140127
  Serious: No
  Sender: FDA-Public Use
  Company Number: US-B.I. PHARMACEUTICALS,INC./RIDGEFIELD-2013-BI-04504BP

PATIENT
  Sex: Female

DRUGS (7)
  1. SPIRIVA [Suspect]
     Indication: CHRONIC OBSTRUCTIVE PULMONARY DISEASE
     Dosage: 18 MCG
     Route: 055
     Dates: start: 201212
  2. SPIRIVA [Suspect]
     Dosage: 18 MCG
     Route: 055
     Dates: start: 2012, end: 2012
  3. VENTOLIN INHALER [Concomitant]
     Indication: CHRONIC OBSTRUCTIVE PULMONARY DISEASE
  4. AMLODIPINE [Concomitant]
     Indication: HYPERTENSION
  5. ALBUTEROL INHALER [Concomitant]
     Indication: CHRONIC OBSTRUCTIVE PULMONARY DISEASE
  6. LOSARTAN [Concomitant]
     Indication: HYPERTENSION
  7. PEPCID [Concomitant]
     Indication: CROHN^S DISEASE

REACTIONS (6)
  - Drug ineffective [Recovered/Resolved]
  - Chronic obstructive pulmonary disease [Recovered/Resolved]
  - Laryngitis [Not Recovered/Not Resolved]
  - Dysphonia [Not Recovered/Not Resolved]
  - Aphonia [Recovered/Resolved]
  - Drug ineffective [Not Recovered/Not Resolved]
